FAERS Safety Report 15348650 (Version 1)
Quarter: 2018Q3

REPORT INFORMATION
  Report Type: Spontaneous
  Country: US (occurrence: US)
  Receive Date: 20180829
  Receipt Date: 20180829
  Transmission Date: 20181010
  Serious: Yes (Disabling)
  Sender: FDA-Public Use
  Company Number: None

PATIENT
  Age: 33 Year
  Sex: Female
  Weight: 73 kg

DRUGS (22)
  1. GIAPREZA [Suspect]
     Active Substance: ANGIOTENSIN II
     Indication: SEPTIC SHOCK
     Dosage: ?          OTHER FREQUENCY:38 NG/KG/MIN;?
     Route: 041
  2. AZITHROMYCIN ANHYDROUS. [Concomitant]
     Active Substance: AZITHROMYCIN ANHYDROUS
  3. FENTANYL. [Concomitant]
     Active Substance: FENTANYL
  4. PHENYLEPHRINE [Concomitant]
     Active Substance: PHENYLEPHRINE\PHENYLEPHRINE HYDROCHLORIDE
  5. PROPOFOL. [Concomitant]
     Active Substance: PROPOFOL
  6. VASOPRESSIN. [Concomitant]
     Active Substance: VASOPRESSIN
  7. ACETAMINOPHEN. [Concomitant]
     Active Substance: ACETAMINOPHEN
  8. HYDROCORTISONE. [Concomitant]
     Active Substance: HYDROCORTISONE
  9. TOBRAMYCIN. [Concomitant]
     Active Substance: TOBRAMYCIN
  10. CEFEPIME [Concomitant]
     Active Substance: CEFEPIME HYDROCHLORIDE
  11. CISATRACURIUM. [Concomitant]
     Active Substance: CISATRACURIUM
  12. CALCIUM CHLORIDE. [Concomitant]
     Active Substance: CALCIUM CHLORIDE
  13. HEPARIN [Concomitant]
     Active Substance: HEPARIN SODIUM
  14. PANTOPRAZOLE [Concomitant]
     Active Substance: PANTOPRAZOLE
  15. LACTATED RINGERS SOLUTION [Concomitant]
     Active Substance: CALCIUM CHLORIDE\POTASSIUM CHLORIDE\SODIUM CHLORIDE\SODIUM LACTATE
  16. NOREPINEPHRINE. [Concomitant]
     Active Substance: NOREPINEPHRINE
  17. METRONIDAZOLE. [Concomitant]
     Active Substance: METRONIDAZOLE
  18. EPINEPHRINE. [Concomitant]
     Active Substance: EPINEPHRINE
  19. VANCOMYCIN [Concomitant]
     Active Substance: VANCOMYCIN
  20. ALBUTEROL. [Concomitant]
     Active Substance: ALBUTEROL
  21. DUOSOL [Concomitant]
  22. SODIUM BICARBONATE. [Concomitant]
     Active Substance: SODIUM BICARBONATE

REACTIONS (3)
  - Skin texture abnormal [None]
  - Hand amputation [None]
  - Pulse absent [None]

NARRATIVE: CASE EVENT DATE: 20180731
